FAERS Safety Report 5731114-1 (Version None)
Quarter: 2008Q2

REPORT INFORMATION
  Report Type: 
  Country: None (occurrence: None)
  Receive Date: 20080505
  Receipt Date: 20080421
  Transmission Date: 20081010
  Serious: Yes (Hospitalization)
  Sender: FDA-Public Use
  Company Number: 2008BI003140

PATIENT
  Age: 37 Year
  Sex: Female
  Weight: 115.6672 kg

DRUGS (3)
  1. AVONEX [Suspect]
     Indication: MULTIPLE SCLEROSIS
     Dosage: 30 UG;QW;IM
     Route: 030
     Dates: start: 20061103
  2. METHOCARBAMOL [Concomitant]
  3. TYLENOL EXTRA STRENGTH [Concomitant]

REACTIONS (1)
  - PAPILLARY THYROID CANCER [None]
